FAERS Safety Report 9228704 (Version 2)
Quarter: 2013Q2

REPORT INFORMATION
  Report Type: Spontaneous
  Country: JP (occurrence: JP)
  Receive Date: 20130412
  Receipt Date: 20130417
  Transmission Date: 20140414
  Serious: Yes (Hospitalization)
  Sender: FDA-Public Use
  Company Number: JP-MERCK-1304JPN004102

PATIENT
  Age: 77 Year
  Sex: Female

DRUGS (13)
  1. GLACTIV [Suspect]
     Indication: TYPE 2 DIABETES MELLITUS
     Dosage: 50 MG, BID
     Route: 048
     Dates: start: 20130208
  2. RIVASTIGMINE [Suspect]
     Indication: DEMENTIA ALZHEIMER^S TYPE
     Dosage: 13.5 MG, QD
     Route: 062
     Dates: start: 20130110, end: 20130209
  3. RIVASTIGMINE [Suspect]
     Dosage: 4.5 MG, QD
     Route: 062
     Dates: start: 2012
  4. DOMPERIDONE [Concomitant]
  5. HOKUNALIN [Concomitant]
     Dosage: UNK
     Dates: start: 20130208
  6. SPIRONOLACTONE [Concomitant]
  7. GLYCYRON [Concomitant]
     Dosage: UNK
     Dates: start: 20130208
  8. MONILAC [Concomitant]
  9. GLIMEPIRIDE [Concomitant]
  10. TIARYL [Concomitant]
  11. REFLEX [Concomitant]
     Dosage: UNK
  12. FLUTIDE [Concomitant]
     Dosage: UNK
     Dates: start: 20130208
  13. MINZAIN [Concomitant]

REACTIONS (2)
  - Ascites [Recovered/Resolved]
  - Asthma [Recovered/Resolved]
